FAERS Safety Report 23743620 (Version 2)
Quarter: 2024Q2

REPORT INFORMATION
  Report Type: Spontaneous
  Country: GB (occurrence: GB)
  Receive Date: 20240415
  Receipt Date: 20240510
  Transmission Date: 20240716
  Serious: Yes (Congenital Anomaly, Other)
  Sender: FDA-Public Use
  Company Number: None

PATIENT
  Age: 15 Year
  Sex: Male
  Weight: 43 kg

DRUGS (16)
  1. AMOXICILLIN [Suspect]
     Active Substance: AMOXICILLIN
     Indication: Infected cyst
     Dosage: 250 MG, BID
     Route: 065
     Dates: start: 20240329, end: 20240405
  2. CLARITHROMYCIN [Suspect]
     Active Substance: CLARITHROMYCIN
     Indication: Infected cyst
     Dosage: 250 MG, BID
     Route: 065
     Dates: start: 20240329, end: 20240405
  3. LANSOPRAZOLE [Suspect]
     Active Substance: LANSOPRAZOLE
     Indication: Infected cyst
     Dosage: 250 MG, BID
     Route: 065
     Dates: start: 20240329, end: 20240405
  4. GAVISCON [Concomitant]
     Active Substance: ALUMINUM HYDROXIDE\MAGNESIUM CARBONATE
     Indication: Product used for unknown indication
     Dosage: UNK
     Route: 065
  5. GAVISCON [Concomitant]
     Active Substance: ALUMINUM HYDROXIDE\MAGNESIUM CARBONATE
     Route: 065
  6. LEVETIRACETAM [Concomitant]
     Active Substance: LEVETIRACETAM
     Indication: Epilepsy
     Route: 065
  7. OMEPRAZOLE [Concomitant]
     Active Substance: DONEPEZIL HYDROCHLORIDE\OMEPRAZOLE\OMEPRAZOLE MAGNESIUM
     Indication: Product used for unknown indication
     Route: 065
  8. OMEPRAZOLE [Concomitant]
     Active Substance: DONEPEZIL HYDROCHLORIDE\OMEPRAZOLE\OMEPRAZOLE MAGNESIUM
     Route: 065
  9. POTASSIUM CITRATE [Concomitant]
     Active Substance: POTASSIUM CITRATE
     Indication: Product used for unknown indication
     Route: 065
  10. POTASSIUM CITRATE [Concomitant]
     Active Substance: POTASSIUM CITRATE
     Route: 065
  11. SODIUM BENZOATE [Concomitant]
     Active Substance: SODIUM BENZOATE
     Indication: Product used for unknown indication
     Dosage: UNK
     Route: 065
  12. SODIUM BENZOATE [Concomitant]
     Active Substance: SODIUM BENZOATE
     Route: 065
  13. SODIUM BICARBONATE [Concomitant]
     Active Substance: SODIUM BICARBONATE
     Indication: Product used for unknown indication
     Dosage: UNK
     Route: 065
  14. SODIUM BICARBONATE [Concomitant]
     Active Substance: SODIUM BICARBONATE
     Route: 065
  15. ZONISAMIDE [Concomitant]
     Active Substance: ZONISAMIDE
     Indication: Product used for unknown indication
     Route: 065
  16. ZONISAMIDE [Concomitant]
     Active Substance: ZONISAMIDE
     Route: 065

REACTIONS (5)
  - Muscle twitching [Recovered/Resolved]
  - Dyskinesia [Recovered/Resolved]
  - Muscle spasms [Recovered/Resolved]
  - Insomnia [Recovered/Resolved]
  - Dyspnoea [Recovered/Resolved]

NARRATIVE: CASE EVENT DATE: 20240402
